FAERS Safety Report 19864811 (Version 2)
Quarter: 2021Q4

REPORT INFORMATION
  Report Type: Spontaneous
  Country: AR (occurrence: AR)
  Receive Date: 20210921
  Receipt Date: 20211004
  Transmission Date: 20220303
  Serious: Yes (Disabling)
  Sender: FDA-Public Use
  Company Number: AR-PFIZER INC-202101169266

PATIENT
  Age: 55 Year
  Sex: Male

DRUGS (1)
  1. GENOTROPIN [Suspect]
     Active Substance: SOMATROPIN
     Indication: Hypopituitarism
     Dosage: 0.1 TO 0.5 MG, 7X PER WEEK
     Dates: start: 20130410

REACTIONS (2)
  - Visual impairment [Not Recovered/Not Resolved]
  - Movement disorder [Not Recovered/Not Resolved]
